FAERS Safety Report 23741160 (Version 2)
Quarter: 2024Q2

REPORT INFORMATION
  Report Type: Spontaneous
  Country: RU (occurrence: RU)
  Receive Date: 20240415
  Receipt Date: 20240502
  Transmission Date: 20240717
  Serious: Yes (Hospitalization)
  Sender: FDA-Public Use
  Company Number: RU-SANDOZ-SDZ2024RU038576

PATIENT
  Sex: Female
  Weight: 63 kg

DRUGS (16)
  1. CARBOPLATIN [Suspect]
     Active Substance: CARBOPLATIN
     Dosage: UNK
     Route: 065
     Dates: start: 20231031, end: 20240307
  2. CARBOPLATIN [Suspect]
     Active Substance: CARBOPLATIN
     Indication: HER2 positive breast cancer
     Dosage: CYCLE NUMBER OF THE LAST ADMINISTRATION PRIOR TO SAE ONSET - 6 FIRST ADMINISTRATION - 570 MG LAST
     Route: 042
     Dates: start: 20231031, end: 20240307
  3. CARBOPLATIN [Suspect]
     Active Substance: CARBOPLATIN
     Dosage: UNK
     Route: 065
     Dates: start: 20231031, end: 20240307
  4. DOCETAXEL [Suspect]
     Active Substance: DOCETAXEL\DOCETAXEL ANHYDROUS
     Indication: HER2 positive breast cancer
     Dosage: FIRST ADMINISTRATION - 134.25 MG CYCLE 1 INTRAVENOUS (NOT OTHERWISE SPECIFIED)
     Route: 042
     Dates: start: 20231031, end: 20231031
  5. HERCEPTIN [Suspect]
     Active Substance: TRASTUZUMAB
     Indication: HER2 positive breast cancer
     Dosage: CYCLE - 1 - INTRAVENOUS (NOT OTHERWISE SPECIFIED)
     Route: 042
     Dates: start: 20231031, end: 20231031
  6. HERCEPTIN [Suspect]
     Active Substance: TRASTUZUMAB
     Dosage: FIRST ADMINISTRATION 438 MG LAST ADMINISTRATION 378 MG CYCLES 2-6
     Route: 017
     Dates: start: 20231124, end: 20240307
  7. HERCEPTIN [Suspect]
     Active Substance: TRASTUZUMAB
     Dosage: CYCLE - 1 - INTRAVENOUS (NOT OTHERWISE SPECIFIED)
     Route: 042
     Dates: start: 20231031, end: 20231031
  8. DOCETAXEL [Suspect]
     Active Substance: DOCETAXEL\DOCETAXEL ANHYDROUS
     Indication: HER2 positive breast cancer
     Dosage: CYCLES 2-6 FIRST ADMINISTRATION - 134.25 LAST ADMINISTRATION - 124.5 MG - INTRAVENOUS (NOT OTHERWISE
     Route: 042
     Dates: start: 20231124, end: 20240307
  9. DOCETAXEL [Suspect]
     Active Substance: DOCETAXEL\DOCETAXEL ANHYDROUS
     Dosage: UNK
     Route: 065
     Dates: start: 20231124, end: 20240307
  10. DOCETAXEL [Suspect]
     Active Substance: DOCETAXEL\DOCETAXEL ANHYDROUS
     Dosage: UNK
     Route: 065
     Dates: start: 20231124, end: 20240307
  11. DEXAMETHASONE [Concomitant]
     Active Substance: DEXAMETHASONE
     Indication: Premedication
     Dosage: UNK
     Route: 065
     Dates: start: 20231031, end: 20240309
  12. DEXAMETHASONE [Concomitant]
     Active Substance: DEXAMETHASONE
     Dosage: UNK
     Route: 065
     Dates: start: 20231031, end: 20240307
  13. EMPEGFILGRASTIM [Concomitant]
     Active Substance: EMPEGFILGRASTIM
     Indication: Prophylaxis
     Dosage: UNK
     Route: 065
     Dates: start: 20231110, end: 20240309
  14. EPOETIN ALFA [Concomitant]
     Active Substance: ERYTHROPOIETIN
     Indication: Anaemia
     Dosage: UNK
     Route: 065
     Dates: start: 20231216, end: 20240220
  15. FERRIC CARBOXYMALTOSE [Concomitant]
     Active Substance: FERRIC CARBOXYMALTOSE
     Indication: Anaemia
     Dosage: UNK
     Route: 065
     Dates: start: 20231216, end: 20240216
  16. ONDANSETRON [Concomitant]
     Active Substance: ONDANSETRON
     Indication: Nausea
     Dosage: UNK
     Route: 065
     Dates: start: 20231031, end: 20240315

REACTIONS (5)
  - Hypoproteinaemia [Not Recovered/Not Resolved]
  - Electrolyte depletion [Not Recovered/Not Resolved]
  - Gastritis erosive [Not Recovered/Not Resolved]
  - Anaemia [Not Recovered/Not Resolved]
  - Colitis [Recovering/Resolving]

NARRATIVE: CASE EVENT DATE: 20240318
